FAERS Safety Report 10170927 (Version 3)
Quarter: 2014Q2

REPORT INFORMATION
  Report Type: Spontaneous
  Country: AU (occurrence: AU)
  Receive Date: 20140514
  Receipt Date: 20140605
  Transmission Date: 20141212
  Serious: Yes (Death, Other)
  Sender: FDA-Public Use
  Company Number: AU-ROCHE-1398511

PATIENT
  Age: 84 Year
  Sex: Male

DRUGS (8)
  1. AVASTIN [Suspect]
     Indication: COLON CANCER METASTATIC
     Route: 042
     Dates: start: 20140409, end: 20140409
  2. IRINOTECAN [Suspect]
     Indication: COLON CANCER METASTATIC
     Route: 042
     Dates: start: 20140409, end: 20140409
  3. 5-FU [Suspect]
     Indication: COLON CANCER METASTATIC
     Dosage: BOLUS
     Route: 042
     Dates: start: 20140409
  4. 5-FU [Suspect]
     Route: 042
     Dates: start: 20140409, end: 20140411
  5. DEXAMETHASONE [Concomitant]
     Route: 042
     Dates: start: 20140409, end: 20140409
  6. DEXAMETHASONE [Concomitant]
     Dosage: 2 4HRLY WHEN REQUIRED
     Route: 065
  7. METOCLOPRAMIDE [Concomitant]
     Dosage: 1 TO 2 4 HRLY WHEN REQUIRED
     Route: 048
     Dates: start: 20140409, end: 20140412
  8. PALONOSETRON [Concomitant]
     Dosage: ONCE
     Route: 042
     Dates: start: 20140409, end: 20140412

REACTIONS (2)
  - Intestinal perforation [Fatal]
  - Metastasis [Unknown]
